FAERS Safety Report 7796850-4 (Version None)
Quarter: 2011Q4

REPORT INFORMATION
  Report Type: 
  Country: None (occurrence: None)
  Receive Date: 20111005
  Receipt Date: 20110930
  Transmission Date: 20120403
  Serious: Yes (Death, Hospitalization)
  Sender: FDA-Public Use
  Company Number: DE-ASTRAZENECA-2010SE25242

PATIENT
  Age: 61 Year
  Sex: Female
  Weight: 64 kg

DRUGS (2)
  1. ANTHRACYCLINE AND TAXAN CHEMOTHERAPEUTICS FOR TOPICAL USE [Concomitant]
     Dosage: 6 CYCLES PLANNED
  2. ARIMIDEX [Suspect]
     Indication: BREAST CANCER
     Route: 048
     Dates: start: 20090601, end: 20100425

REACTIONS (1)
  - SUDDEN DEATH [None]
